FAERS Safety Report 13791849 (Version 3)
Quarter: 2017Q3

REPORT INFORMATION
  Report Type: Spontaneous
  Country: US (occurrence: US)
  Receive Date: 20170725
  Receipt Date: 20170908
  Transmission Date: 20171127
  Serious: Yes (Death, Hospitalization, Other)
  Sender: FDA-Public Use
  Company Number: US-009507513-1707USA009329

PATIENT
  Age: 82 Year
  Sex: Female
  Weight: 67.53 kg

DRUGS (3)
  1. DEXAMETHASONE. [Suspect]
     Active Substance: DEXAMETHASONE
     Indication: METASTASES TO SPINE
     Dosage: 4 MG, BID X 5 DAYS, THEN ONE DAILY X 5 DAYS, THEN ONE EVERY OTHER DAY X 4 DAYS
     Route: 048
     Dates: start: 20170428, end: 20170522
  2. PALBOCICLIB [Concomitant]
     Active Substance: PALBOCICLIB
     Indication: BREAST CANCER METASTATIC
     Dosage: UNK
     Route: 048
     Dates: start: 2017
  3. LETROZOLE. [Concomitant]
     Active Substance: LETROZOLE
     Indication: BREAST CANCER METASTATIC
     Dosage: UNK
     Route: 048
     Dates: start: 2017

REACTIONS (3)
  - Sepsis [Fatal]
  - Pancytopenia [Unknown]
  - Dyspnoea [Unknown]

NARRATIVE: CASE EVENT DATE: 2017
